FAERS Safety Report 10229570 (Version 5)
Quarter: 2014Q3

REPORT INFORMATION
  Report Type: Report from Study
  Country: JP (occurrence: JP)
  Receive Date: 20140611
  Receipt Date: 20140821
  Transmission Date: 20150326
  Serious: Yes (Disabling, Other)
  Sender: FDA-Public Use
  Company Number: JP-AMGEN-JPNCT2014042454

PATIENT
  Age: 59 Year
  Sex: Female
  Weight: 58 kg

DRUGS (17)
  1. NEORAL [Concomitant]
     Active Substance: CYCLOSPORINE
     Indication: IMMUNE THROMBOCYTOPENIC PURPURA
     Dosage: 100 MG, UNK
     Route: 048
     Dates: start: 20130501
  2. FARESTON [Concomitant]
     Active Substance: TOREMIFENE CITRATE
     Indication: BREAST CANCER
     Dosage: UNK
     Route: 048
  3. FERROMIA [Concomitant]
     Active Substance: FERROUS CITRATE
     Indication: IRON DEFICIENCY ANAEMIA
     Dosage: UNK
     Route: 048
  4. LASIX [Concomitant]
     Active Substance: FUROSEMIDE
     Indication: OEDEMA
     Dosage: UNK
     Route: 065
  5. TRANSAMIN [Concomitant]
     Active Substance: TRANEXAMIC ACID
     Indication: PLATELET COUNT DECREASED
     Dosage: UNK
     Route: 065
  6. REVOLADE [Concomitant]
     Active Substance: ELTROMBOPAG
     Indication: IMMUNE THROMBOCYTOPENIC PURPURA
     Dosage: 12.5 MG, UNK
     Route: 048
     Dates: start: 20130430, end: 20140410
  7. PREDNISOLONE. [Concomitant]
     Active Substance: PREDNISOLONE
     Indication: IMMUNE THROMBOCYTOPENIC PURPURA
     Dosage: 30 MG, UNK
     Route: 048
     Dates: start: 20140501
  8. CINAL [Concomitant]
     Active Substance: ASCORBIC ACID\CALCIUM PANTOTHENATE
     Indication: IMMUNE THROMBOCYTOPENIC PURPURA
     Dosage: 600 MG, UNK
     Route: 048
     Dates: start: 20140529
  9. CALONAL [Concomitant]
     Active Substance: ACETAMINOPHEN
     Indication: PAIN
     Dosage: UNK
     Route: 065
  10. NEXIUM [Concomitant]
     Active Substance: ESOMEPRAZOLE MAGNESIUM
     Indication: PROPHYLAXIS
     Dosage: UNK
     Route: 048
  11. LOXONIN [Concomitant]
     Active Substance: LOXOPROFEN SODIUM
     Indication: PAIN
     Dosage: UNK
     Route: 061
  12. ROMIPLOSTIM - KHK [Suspect]
     Active Substance: ROMIPLOSTIM
     Indication: IMMUNE THROMBOCYTOPENIC PURPURA
     Dosage: 5 MUG/KG, QWK
     Route: 058
     Dates: start: 20130530, end: 20140417
  13. CELECOX [Concomitant]
     Active Substance: CELECOXIB
     Indication: PAIN
     Dosage: UNK
     Route: 048
  14. TRAZENTA [Concomitant]
     Active Substance: LINAGLIPTIN
     Indication: DIABETES MELLITUS
     Dosage: UNK
     Route: 048
  15. ZOMETA [Concomitant]
     Active Substance: ZOLEDRONIC ACID
     Indication: BREAST CANCER
     Dosage: UNK
     Route: 065
  16. MOBIC [Concomitant]
     Active Substance: MELOXICAM
     Indication: PAIN
     Dosage: UNK
     Route: 048
  17. DIFLUCAN [Concomitant]
     Active Substance: FLUCONAZOLE
     Indication: PROPHYLAXIS
     Dosage: UNK
     Route: 065

REACTIONS (3)
  - White blood cell count increased [Not Recovered/Not Resolved]
  - Myelofibrosis [Not Recovered/Not Resolved]
  - Antibody test positive [Not Recovered/Not Resolved]

NARRATIVE: CASE EVENT DATE: 20140415
